FAERS Safety Report 19484443 (Version 2)
Quarter: 2021Q3

REPORT INFORMATION
  Report Type: Spontaneous
  Country: BR (occurrence: BR)
  Receive Date: 20210701
  Receipt Date: 20210712
  Transmission Date: 20211014
  Serious: Yes (Other)
  Sender: FDA-Public Use
  Company Number: BR-AMERICAN REGENT INC-2021001667

PATIENT
  Age: 39 Year
  Sex: Female

DRUGS (3)
  1. EUTHYROX [Concomitant]
     Active Substance: LEVOTHYROXINE SODIUM
     Indication: HYPOTHYROIDISM
     Dosage: 125 UNKNOWN
     Route: 065
  2. VENOFER [Suspect]
     Active Substance: IRON SUCROSE
     Indication: SERUM FERRITIN DECREASED
     Dosage: UNK
     Route: 042
     Dates: start: 20210620, end: 202106
  3. VENOFER [Suspect]
     Active Substance: IRON SUCROSE
     Dosage: 2 DOSAGE FORM (AMPOULES) IN 250 MG SALINE, 1 TIME PER WEEK ? 4 ADMINISTRATIONS (1 IN 1 WK)
     Route: 042
     Dates: start: 20170404

REACTIONS (3)
  - Headache [Unknown]
  - Blood pressure abnormal [Not Recovered/Not Resolved]
  - Nausea [Unknown]

NARRATIVE: CASE EVENT DATE: 20210620
